FAERS Safety Report 8044211-5 (Version None)
Quarter: 2012Q1

REPORT INFORMATION
  Report Type: 
  Country: None (occurrence: None)
  Receive Date: 20120113
  Receipt Date: 20111230
  Transmission Date: 20120608
  Serious: Yes (Hospitalization)
  Sender: FDA-Public Use
  Company Number: US-RANBAXY-2011US-51654

PATIENT
  Age: 48 Year
  Sex: Male

DRUGS (6)
  1. METRONIDAZOLE [Suspect]
     Indication: GASTRIC DISORDER
     Dosage: UNK
     Route: 065
  2. CIPROFLOXACIN [Suspect]
     Indication: GASTRIC DISORDER
     Dosage: UNK
     Route: 065
  3. COTRIM [Suspect]
     Indication: PRODUCT USED FOR UNKNOWN INDICATION
     Dosage: UNK
     Route: 065
  4. VANCOMYCIN [Suspect]
     Indication: CELLULITIS
     Dosage: UNK
     Route: 065
  5. SUCRALFATE [Suspect]
     Indication: GASTRIC DISORDER
     Dosage: UNK
     Route: 065
  6. CLINDAMYCIN [Suspect]
     Indication: CELLULITIS
     Dosage: UNK
     Route: 065

REACTIONS (2)
  - CELLULITIS [None]
  - LEUKOCYTOCLASTIC VASCULITIS [None]
